FAERS Safety Report 15894972 (Version 1)
Quarter: 2019Q1

REPORT INFORMATION
  Report Type: Spontaneous
  Country: SE (occurrence: SE)
  Receive Date: 20190131
  Receipt Date: 20190131
  Transmission Date: 20190417
  Serious: Yes (Life-Threatening)
  Sender: FDA-Public Use
  Company Number: SE-TEVA-2019-SE-1005604

PATIENT
  Age: 60 Year
  Sex: Female

DRUGS (6)
  1. BUPRENORPHINE. [Concomitant]
     Active Substance: BUPRENORPHINE
     Dosage: 5 ?G/H
  2. DUROFERON [Concomitant]
     Active Substance: FERROUS SULFATE
     Dosage: 200 MILLIGRAM DAILY;
  3. OMECAT [Concomitant]
     Active Substance: OMEPRAZOLE
     Dosage: 20 MILLIGRAM DAILY;
  4. RAMIPRIL. [Concomitant]
     Active Substance: RAMIPRIL
     Dosage: 5 MILLIGRAM DAILY;
  5. ALVEDON [Concomitant]
     Active Substance: ACETAMINOPHEN
  6. ZOLPIDEM [Suspect]
     Active Substance: ZOLPIDEM\ZOLPIDEM TARTRATE
     Indication: SLEEP DISORDER

REACTIONS (2)
  - Accidental overdose [Recovered/Resolved]
  - Amnestic disorder [Recovered/Resolved]

NARRATIVE: CASE EVENT DATE: 20180926
